FAERS Safety Report 5904213-9 (Version None)
Quarter: 2008Q3

REPORT INFORMATION
  Report Type: 
  Country: None (occurrence: None)
  Receive Date: 20080930
  Receipt Date: 20080930
  Transmission Date: 20090109
  Serious: Yes (Life-Threatening, Hospitalization, Disabling)
  Sender: FDA-Public Use
  Company Number: None

PATIENT
  Sex: Male
  Weight: 100 kg

DRUGS (1)
  1. INTEGRILIN [Suspect]
     Indication: AMYOTROPHIC LATERAL SCLEROSIS

REACTIONS (6)
  - BRAIN OEDEMA [None]
  - CEREBRAL HAEMATOMA [None]
  - HEADACHE [None]
  - NAUSEA [None]
  - POST PROCEDURAL HAEMATOMA [None]
  - VOMITING [None]
